FAERS Safety Report 13707985 (Version 1)
Quarter: 2017Q2

REPORT INFORMATION
  Report Type: Report from Study
  Country: US (occurrence: US)
  Receive Date: 20170630
  Receipt Date: 20170630
  Transmission Date: 20170830
  Serious: No
  Sender: FDA-Public Use
  Company Number: PHEH2017US019971

PATIENT
  Age: 40 Year
  Sex: Female
  Weight: 61.2 kg

DRUGS (1)
  1. COSENTYX [Suspect]
     Active Substance: SECUKINUMAB
     Indication: PSORIASIS
     Dosage: 300 MG, QMO (Q4 WEEKS)
     Route: 058

REACTIONS (2)
  - Injection site erythema [Unknown]
  - Injection site reaction [Unknown]
